FAERS Safety Report 5223141-8 (Version None)
Quarter: 2007Q1

REPORT INFORMATION
  Report Type: 
  Country: None (occurrence: None)
  Receive Date: 20070129
  Receipt Date: 20070117
  Transmission Date: 20070707
  Serious: Yes (Other)
  Sender: FDA-Public Use
  Company Number: BR-PFIZER INC-2007005508

PATIENT
  Sex: Female

DRUGS (1)
  1. DEPO-PROVERA [Suspect]
     Indication: UTERINE HAEMORRHAGE
     Route: 030

REACTIONS (3)
  - BONE DENSITY DECREASED [None]
  - INCORRECT DOSE ADMINISTERED [None]
  - INFERTILITY FEMALE [None]
